FAERS Safety Report 24798130 (Version 10)
Quarter: 2025Q2

REPORT INFORMATION
  Report Type: Report from Study
  Country: US (occurrence: US)
  Receive Date: 20250102
  Receipt Date: 20250529
  Transmission Date: 20250716
  Serious: Yes (Other)
  Sender: TAKEDA
  Company Number: US-TAKEDA-2024TUS129081

PATIENT
  Sex: Male
  Weight: 97 kg

DRUGS (38)
  1. LANADELUMAB [Suspect]
     Active Substance: LANADELUMAB
     Indication: Immune system disorder
     Dosage: 300 MILLIGRAM, Q2WEEKS
     Dates: start: 20241121
  2. LANADELUMAB [Suspect]
     Active Substance: LANADELUMAB
  3. LANADELUMAB [Suspect]
     Active Substance: LANADELUMAB
     Dosage: 300 MILLIGRAM, Q2WEEKS
  4. EPINEPHRINE [Concomitant]
     Active Substance: EPINEPHRINE
  5. RUCONEST [Concomitant]
     Active Substance: CONESTAT ALFA
  6. SODIUM CHLORIDE [Concomitant]
     Active Substance: SODIUM CHLORIDE
  7. TRINTELLIX [Concomitant]
     Active Substance: VORTIOXETINE HYDROBROMIDE
  8. SKYRIZI [Concomitant]
     Active Substance: RISANKIZUMAB-RZAA
  9. NUCALA [Concomitant]
     Active Substance: MEPOLIZUMAB
  10. PREDNISOLONE SODIUM PHOSPHATE [Concomitant]
     Active Substance: PREDNISOLONE SODIUM PHOSPHATE
  11. QUZYTTIR [Concomitant]
     Active Substance: CETIRIZINE HYDROCHLORIDE
  12. OCTAGAM IMMUNE GLOBULIN (HUMAN) [Concomitant]
     Active Substance: HUMAN IMMUNOGLOBULIN G
  13. OMEPRAZOLE [Concomitant]
     Active Substance: OMEPRAZOLE
  14. STERILE WATER [Concomitant]
     Active Substance: WATER
  15. ALBUTEROL SULFATE\IPRATROPIUM BROMIDE [Concomitant]
     Active Substance: ALBUTEROL SULFATE\IPRATROPIUM BROMIDE
  16. PYRIDOSTIGMINE BROMIDE [Concomitant]
     Active Substance: PYRIDOSTIGMINE BROMIDE
  17. LEVOTHYROXINE SODIUM [Concomitant]
     Active Substance: LEVOTHYROXINE SODIUM
  18. CARBAMAZEPINE [Concomitant]
     Active Substance: CARBAMAZEPINE
  19. LEVOCETIRIZINE DIHYDROCHLORIDE [Concomitant]
     Active Substance: LEVOCETIRIZINE DIHYDROCHLORIDE
  20. TRIAMCINOLONE ACETONIDE [Concomitant]
     Active Substance: TRIAMCINOLONE ACETONIDE
  21. FAMOTIDINE [Concomitant]
     Active Substance: FAMOTIDINE
  22. PREDNISONE [Concomitant]
     Active Substance: PREDNISONE
  23. KETOTIFEN [Concomitant]
     Active Substance: KETOTIFEN
  24. BUDESONIDE [Concomitant]
     Active Substance: BUDESONIDE
  25. KETOCONAZOLE [Concomitant]
     Active Substance: KETOCONAZOLE
  26. MIEBO [Concomitant]
     Active Substance: PERFLUOROHEXYLOCTANE
  27. TYRVAYA [Concomitant]
     Active Substance: VARENICLINE TARTRATE
  28. TRELEGY ELLIPTA [Concomitant]
     Active Substance: FLUTICASONE FUROATE\UMECLIDINIUM BROMIDE\VILANTEROL TRIFENATATE
  29. LEVALBUTEROL TARTRATE [Concomitant]
     Active Substance: LEVALBUTEROL TARTRATE
  30. ONDANSETRON [Concomitant]
     Active Substance: ONDANSETRON
  31. CLOBETASOL PROPIONATE [Concomitant]
     Active Substance: CLOBETASOL PROPIONATE
  32. OLOPATADINE HYDROCHLORIDE [Concomitant]
     Active Substance: OLOPATADINE HYDROCHLORIDE
  33. LEVALBUTEROL HYDROCHLORIDE [Concomitant]
     Active Substance: LEVALBUTEROL HYDROCHLORIDE
  34. SODIUM CHLORIDE [Concomitant]
     Active Substance: SODIUM CHLORIDE
  35. KETOTIFEN FUMARATE [Concomitant]
     Active Substance: KETOTIFEN FUMARATE
  36. ALBUTEROL\IPRATROPIUM [Concomitant]
     Active Substance: ALBUTEROL\IPRATROPIUM
  37. HAEGARDA [Concomitant]
     Active Substance: HUMAN C1-ESTERASE INHIBITOR
  38. Prednisolone sodium phos [Concomitant]

REACTIONS (17)
  - Crohn^s disease [Unknown]
  - Product availability issue [Unknown]
  - Inappropriate schedule of product administration [Unknown]
  - Poor venous access [Unknown]
  - Dehydration [Unknown]
  - Gastrointestinal disorder [Unknown]
  - Poor quality device used [Unknown]
  - Device physical property issue [Unknown]
  - Blood potassium decreased [Unknown]
  - Vein rupture [Unknown]
  - Nausea [Unknown]
  - Multiple allergies [Unknown]
  - Malaise [Unknown]
  - Muscular weakness [Unknown]
  - Muscle spasms [Unknown]
  - Tremor [Unknown]
  - Hereditary angioedema [Not Recovered/Not Resolved]
